FAERS Safety Report 11894316 (Version 1)
Quarter: 2016Q1

REPORT INFORMATION
  Report Type: Spontaneous
  Country: US (occurrence: None)
  Receive Date: 20160106
  Receipt Date: 20160106
  Transmission Date: 20160526
  Serious: Yes (Death)
  Sender: FDA-Public Use
  Company Number: None

PATIENT
  Age: 60 Year
  Sex: Male

DRUGS (2)
  1. NITROSTAT [Suspect]
     Active Substance: NITROGLYCERIN
     Indication: CHEST PAIN
     Dosage: 1 TAB EVERY 5 MIN
  2. ULORIC [Suspect]
     Active Substance: FEBUXOSTAT
     Indication: TRANSPLANT
     Route: 048

REACTIONS (1)
  - Death [None]
